FAERS Safety Report 20407203 (Version 2)
Quarter: 2022Q1

REPORT INFORMATION
  Report Type: Spontaneous
  Country: GB (occurrence: GB)
  Receive Date: 20220131
  Receipt Date: 20220221
  Transmission Date: 20220424
  Serious: No
  Sender: FDA-Public Use
  Company Number: GB-LUPIN PHARMACEUTICALS INC.-2022-01056

PATIENT
  Age: 30 Year
  Sex: Female

DRUGS (8)
  1. HYDROCORTISONE [Suspect]
     Active Substance: HYDROCORTISONE
     Indication: Addison^s disease
     Dosage: 100 MILLIGRAM (AN INITIAL DOSE)
     Route: 042
  2. HYDROCORTISONE [Suspect]
     Active Substance: HYDROCORTISONE
     Indication: Polyglandular autoimmune syndrome type II
     Dosage: 50 MILLIGRAM (SUBSEQUENT DOSE; EVERY 6H TILL DELIVERY)
     Route: 042
  3. HYDROCORTISONE [Suspect]
     Active Substance: HYDROCORTISONE
     Dosage: 15-20 MG
     Route: 048
  4. THYROXINE [Suspect]
     Active Substance: LEVOTHYROXINE
     Indication: Primary hypothyroidism
     Dosage: 125 MICROGRAM
     Route: 065
  5. FLUDROCORTISONE [Suspect]
     Active Substance: FLUDROCORTISONE
     Indication: Addison^s disease
     Dosage: 0.05-0.20MG
     Route: 065
  6. DEXTROSE [Suspect]
     Active Substance: DEXTROSE
     Indication: Glucose tolerance test
     Dosage: UNK
     Route: 065
  7. NITROUS OXIDE\OXYGEN [Suspect]
     Active Substance: NITROUS OXIDE\OXYGEN
     Indication: Analgesic therapy
     Dosage: UNK
     Route: 065
  8. OXYTOCIN [Suspect]
     Active Substance: OXYTOCIN
     Indication: Labour induction
     Dosage: UNK
     Route: 065

REACTIONS (2)
  - Exposure during pregnancy [Unknown]
  - Normal newborn [Unknown]
